FAERS Safety Report 5664760-4 (Version None)
Quarter: 2008Q1

REPORT INFORMATION
  Report Type: 
  Country: None (occurrence: None)
  Receive Date: 20080312
  Receipt Date: 20080303
  Transmission Date: 20080703
  Serious: Yes (Hospitalization)
  Sender: FDA-Public Use
  Company Number: 163-20785-08030190

PATIENT
  Age: 64 Year
  Sex: Male

DRUGS (30)
  1. THALOMID [Suspect]
     Indication: MULTIPLE MYELOMA
     Dosage: 100 MG, EVERY EVENING, ORAL; 200 MG, EVERY EVENING, ORAL; 50 MG, 1 IN 1 D, ORAL
     Route: 048
     Dates: end: 20080224
  2. THALOMID [Suspect]
     Indication: MULTIPLE MYELOMA
     Dosage: 100 MG, EVERY EVENING, ORAL; 200 MG, EVERY EVENING, ORAL; 50 MG, 1 IN 1 D, ORAL
     Route: 048
     Dates: start: 20060415
  3. VELCADE [Suspect]
     Indication: MULTIPLE MYELOMA
     Dosage: 1 MG/M2, DAYS 1, 4, 8, 11, INTRAVENOUS; 1 MG/M2, DAYS 1, 4, 8, 11, INTRAVENOUS
     Route: 042
     Dates: end: 20080215
  4. VELCADE [Suspect]
     Indication: MULTIPLE MYELOMA
     Dosage: 1 MG/M2, DAYS 1, 4, 8, 11, INTRAVENOUS; 1 MG/M2, DAYS 1, 4, 8, 11, INTRAVENOUS
     Route: 042
     Dates: start: 20060412
  5. DEXAMETHASONE [Suspect]
     Indication: MULTIPLE MYELOMA
     Dosage: 40 MG, DAYS 1-4, 8-11, EVERY 28 DAYS, ORAL; 40 MG, DAYS 1-4, 8-11, EVERY 28 DAYS, ORAL
     Route: 048
     Dates: end: 20080215
  6. DEXAMETHASONE [Suspect]
     Indication: MULTIPLE MYELOMA
     Dosage: 40 MG, DAYS 1-4, 8-11, EVERY 28 DAYS, ORAL; 40 MG, DAYS 1-4, 8-11, EVERY 28 DAYS, ORAL
     Route: 048
     Dates: start: 20060415
  7. MELPHALAN (MELPHALAN) [Suspect]
     Indication: MULTIPLE MYELOMA
     Dosage: 200 MG/M2,; 200 MG/M2,
     Dates: start: 20060703, end: 20060703
  8. MELPHALAN (MELPHALAN) [Suspect]
     Indication: MULTIPLE MYELOMA
     Dosage: 200 MG/M2,; 200 MG/M2,
     Dates: start: 20061007, end: 20061007
  9. CISPLATIN [Suspect]
     Indication: MULTIPLE MYELOMA
     Dosage: 10 MG/M2,
     Dates: start: 20060415
  10. ADRIAMYCIN PFS [Suspect]
     Indication: MULTIPLE MYELOMA
     Dosage: 7.5 MG/M2,; 10 MG/M2,
     Dates: end: 20070428
  11. ADRIAMYCIN PFS [Suspect]
     Indication: MULTIPLE MYELOMA
     Dosage: 7.5 MG/M2,; 10 MG/M2,
     Dates: start: 20060415
  12. CYCLOPHOSPHAMIDE [Suspect]
     Indication: MULTIPLE MYELOMA
     Dosage: 300 MG/M2,; 400 MG/M2,
     Dates: end: 20070428
  13. CYCLOPHOSPHAMIDE [Suspect]
     Indication: MULTIPLE MYELOMA
     Dosage: 300 MG/M2,; 400 MG/M2,
     Dates: start: 20060415
  14. ETOPOSIDE [Suspect]
     Indication: MULTIPLE MYELOMA
     Dosage: 30 MG/M2,; 40 MG/M2,
     Dates: end: 20070428
  15. ETOPOSIDE [Suspect]
     Indication: MULTIPLE MYELOMA
     Dosage: 30 MG/M2,; 40 MG/M2,
     Dates: start: 20060415
  16. FLAGYL (METRONIDAZOLE) (500 MILLIGRAM, TABLETS) [Concomitant]
  17. LEVAQUIN (LEVOFLOXACIN) (500 MILLIGRAM, TABLETS) [Concomitant]
  18. ACYCLOVIR (ACICLOVIR) (500 MILLIGRAM, TABLETS) [Concomitant]
  19. FLOMAX (TAMSULOSIN HYDROCHLORIDE) (0.4 MILLIGRAM, CAPSULES) [Concomitant]
  20. PROTONIX (PANTOPRAZOLE) (40 MILLIGRAM, TABLETS) [Concomitant]
  21. MULTIVITAMINS (MULTIVITAMINS) (CAPSULES) [Concomitant]
  22. KLOR-CON [Concomitant]
  23. MAGNESIUM OXIDE (MAGNESIUM OXIDE) (400 MILLIGRAM, TABLETS) [Concomitant]
  24. LYRICA (PREGABALIN) (50 MILLIGRAM, CAPSULES) [Concomitant]
  25. FOLIC ACID (FOLIC ACID) (1 MILLIGRAM, TABLETS) [Concomitant]
  26. SYNTHROID (LEVOTHYROXINE SODIUM) (25 MILLIGRAM, TABLETS) [Concomitant]
  27. DIFLUCAN (FLUCONAZOLE) (200 MILLIGRAM, TABLETS) [Concomitant]
  28. AMBIEN (ZOLPIDEM TARTRATE) (5 MILLIGRAM, TABLETS) [Concomitant]
  29. ASPIRIN [Concomitant]
  30. TRIAMCINOLONE (TRIAMCINOLONE) (CREAM) [Concomitant]

REACTIONS (7)
  - BLOOD POTASSIUM DECREASED [None]
  - CLOSTRIDIAL INFECTION [None]
  - DIARRHOEA [None]
  - HERPES ZOSTER [None]
  - POST HERPETIC NEURALGIA [None]
  - RENAL FAILURE ACUTE [None]
  - URINARY RETENTION [None]
